FAERS Safety Report 17766783 (Version 1)
Quarter: 2020Q2

REPORT INFORMATION
  Report Type: Report from Study
  Country: US (occurrence: US)
  Receive Date: 20200511
  Receipt Date: 20200511
  Transmission Date: 20200714
  Serious: Yes (Other)
  Sender: FDA-Public Use
  Company Number: US-RETROPHIN, INC.-2020RTN00052

PATIENT
  Sex: Male

DRUGS (1)
  1. CHOLIC ACID [Suspect]
     Active Substance: CHOLIC ACID
     Indication: CEREBROHEPATORENAL SYNDROME
     Dosage: 100 MG, 2X/DAY
     Dates: start: 20200101, end: 2020

REACTIONS (2)
  - Hospice care [Unknown]
  - Disease progression [Unknown]

NARRATIVE: CASE EVENT DATE: 2020
